FAERS Safety Report 12364876 (Version 1)
Quarter: 2016Q2

REPORT INFORMATION
  Report Type: Spontaneous
  Country: US (occurrence: US)
  Receive Date: 20160512
  Receipt Date: 20160512
  Transmission Date: 20160815
  Serious: Yes (Other)
  Sender: FDA-Public Use
  Company Number: US-ABBVIE-16P-163-1625379-00

PATIENT
  Age: 43 Year
  Sex: Male

DRUGS (1)
  1. ANDROGEL [Suspect]
     Active Substance: TESTOSTERONE
     Indication: PRODUCT USED FOR UNKNOWN INDICATION
     Route: 061

REACTIONS (10)
  - Colitis [Unknown]
  - Arthropathy [Unknown]
  - Clostridium difficile infection [Unknown]
  - Rheumatoid arthritis [Unknown]
  - Hernia [Unknown]
  - Fistula [Unknown]
  - Prostatitis [Unknown]
  - Groin pain [Unknown]
  - Arthralgia [Unknown]
  - Diarrhoea [Unknown]
